FAERS Safety Report 17802434 (Version 1)
Quarter: 2020Q2

REPORT INFORMATION
  Report Type: Spontaneous
  Country: US (occurrence: US)
  Receive Date: 20200518
  Receipt Date: 20200518
  Transmission Date: 20200714
  Serious: Yes (Other)
  Sender: FDA-Public Use
  Company Number: None

PATIENT
  Age: 59 Year
  Sex: Female
  Weight: 86.18 kg

DRUGS (1)
  1. HAND SANITIZER NOS [Suspect]
     Active Substance: ALCOHOL\AVOBENZONE\HOMOSALATE\OCTISALATE\OCTOCRYLENE\OXYBENZONE OR ALCOHOL\HOMOSALATE\OCTINOXATE\OCTISALATE\OXYBENZONE OR ALCOHOL\NAPHAZOLINE HYDROCHLORIDE\POLYETHYLENE GLYCOL 300 OR CITRIC ACID MONOHYDRATE\COCAMIDOPROPYL BETAINE OR ISOPROPYL ALCOHOL

REACTIONS (2)
  - Product packaging confusion [None]
  - Accidental exposure to product [None]

NARRATIVE: CASE EVENT DATE: 20200516
